FAERS Safety Report 6167173-4 (Version None)
Quarter: 2009Q2

REPORT INFORMATION
  Report Type: 
  Country: None (occurrence: None)
  Receive Date: 20090424
  Receipt Date: 20090414
  Transmission Date: 20091009
  Serious: Yes (Death, Other)
  Sender: FDA-Public Use
  Company Number: JP-PFIZER INC-2008096455

PATIENT

DRUGS (10)
  1. TOPOTECIN [Suspect]
     Indication: OVARIAN CANCER
     Dosage: (70 MG)
     Dates: start: 20051226, end: 20051226
  2. TOPOTECIN [Suspect]
     Dosage: 60 MG (60 MG), INTERMITTENT
     Dates: start: 20060105, end: 20070118
  3. DOCETAXEL [Suspect]
     Indication: OVARIAN CANCER
     Dosage: 70 MG (70 MG), 1X/DAY, INTERMITTENT
     Route: 042
     Dates: start: 20051226, end: 20060707
  4. DOCETAXEL [Suspect]
     Dosage: 50 MG (50 MG), 1X/DAY, INTERMITTENT
     Route: 042
     Dates: start: 20060720, end: 20060720
  5. DOCETAXEL [Suspect]
     Dosage: 70 MG (70 MG), 1X/DAY, INTERMITTENT
     Route: 042
     Dates: start: 20060914, end: 20070118
  6. NEUTROGIN [Concomitant]
     Dosage: 100 UG (100 UG), 1X/DAY
     Route: 058
     Dates: start: 20051209, end: 20051211
  7. NEUTROGIN [Concomitant]
     Dosage: 100 UG (100 UG), 1X/DAY
     Route: 058
     Dates: start: 20051226, end: 20051226
  8. NEUTROGIN [Concomitant]
     Dosage: 100 UG (100 UG), 1X/DAY
     Route: 058
     Dates: start: 20060102, end: 20060103
  9. NEUTROGIN [Concomitant]
     Dosage: 100 UG, 1X/DAY, INTERMITTENT
     Dates: start: 20060331, end: 20061229
  10. GRAN [Concomitant]
     Dosage: 75 UG (75 UG), INTERMITTENT
     Dates: start: 20061122, end: 20061126

REACTIONS (2)
  - BONE MARROW FAILURE [None]
  - MYELODYSPLASTIC SYNDROME [None]
